FAERS Safety Report 5807635-X (Version None)
Quarter: 2008Q3

REPORT INFORMATION
  Report Type: 
  Country: None (occurrence: None)
  Receive Date: 20080711
  Receipt Date: 20080707
  Transmission Date: 20090109
  Serious: Yes (Life-Threatening, Hospitalization)
  Sender: FDA-Public Use
  Company Number: US-ROCHE-571018

PATIENT
  Age: 61 Year
  Sex: Female

DRUGS (10)
  1. BONIVA [Suspect]
     Indication: OSTEOPOROSIS
     Route: 042
  2. FORTEO [Concomitant]
  3. ACTONEL [Concomitant]
  4. DETROL [Concomitant]
  5. NEXIUM [Concomitant]
  6. ZYRTEC [Concomitant]
  7. NASACORT [Concomitant]
  8. PRAVACHOL [Concomitant]
  9. PREMARIN [Concomitant]
  10. NORVASC [Concomitant]

REACTIONS (4)
  - CARDIAC ARREST [None]
  - ERYTHEMA [None]
  - FLUSHING [None]
  - PAIN [None]
